FAERS Safety Report 7722301-1 (Version None)
Quarter: 2011Q3

REPORT INFORMATION
  Report Type: 
  Country: None (occurrence: None)
  Receive Date: 20110831
  Receipt Date: 20101216
  Transmission Date: 20111222
  Serious: Yes (Other)
  Sender: FDA-Public Use
  Company Number: JP-PFIZER INC-2011201623

PATIENT
  Age: 68 Year
  Sex: Female

DRUGS (1)
  1. MIGLITOL [Suspect]
     Dosage: 150 MG, 1X/DAY
     Route: 048
     Dates: start: 20071204, end: 20080226

REACTIONS (1)
  - LIVER DISORDER [None]
